FAERS Safety Report 5133895-7 (Version None)
Quarter: 2006Q4

REPORT INFORMATION
  Report Type: 
  Country: None (occurrence: None)
  Receive Date: 20061018
  Receipt Date: 20061010
  Transmission Date: 20070319
  Serious: Yes (Hospitalization)
  Sender: FDA-Public Use
  Company Number: APP200600297

PATIENT
  Age: 41 Year
  Sex: Female

DRUGS (1)
  1. CHORIONIC GONADORTOPIN INJ [Suspect]
     Indication: IN VITRO FERTILISATION
     Dosage: UNK, (5000 IU, ONCE)

REACTIONS (3)
  - ADNEXA UTERI MASS [None]
  - OVARIAN TORSION [None]
  - POLYCYSTIC OVARIES [None]
